FAERS Safety Report 8064970-5 (Version None)
Quarter: 2012Q1

REPORT INFORMATION
  Report Type: 
  Country: None (occurrence: None)
  Receive Date: 20120124
  Receipt Date: 20120117
  Transmission Date: 20120608
  Serious: No
  Sender: FDA-Public Use
  Company Number: US-BIOGENIDEC-2012BI002098

PATIENT
  Sex: Female

DRUGS (1)
  1. TYSABRI [Suspect]
     Indication: MULTIPLE SCLEROSIS
     Route: 042
     Dates: start: 20070515

REACTIONS (5)
  - URINARY RETENTION [None]
  - VITAMIN D DEFICIENCY [None]
  - BONE PAIN [None]
  - URINARY INCONTINENCE [None]
  - BACK PAIN [None]
